FAERS Safety Report 4943312-5 (Version None)
Quarter: 2006Q1

REPORT INFORMATION
  Report Type: 
  Country: None (occurrence: None)
  Receive Date: 20060309
  Receipt Date: 20060227
  Transmission Date: 20060701
  Serious: Yes (Hospitalization, Disabling, Other)
  Sender: FDA-Public Use
  Company Number: 2006BH004029

PATIENT
  Sex: Male

DRUGS (1)
  1. DIGOXIN [Suspect]
     Indication: ARRHYTHMIA
     Dosage: 1.25 MG; ONCE;

REACTIONS (8)
  - ABASIA [None]
  - ACCIDENTAL OVERDOSE [None]
  - CARDIAC ARREST [None]
  - COLOSTOMY [None]
  - INCORRECT DOSE ADMINISTERED [None]
  - LEG AMPUTATION [None]
  - MENTAL IMPAIRMENT [None]
  - MULTI-ORGAN DISORDER [None]
